FAERS Safety Report 6997511-1 (Version None)
Quarter: 2010Q3

REPORT INFORMATION
  Report Type: 
  Country: None (occurrence: None)
  Receive Date: 20100918
  Receipt Date: 20091015
  Transmission Date: 20110219
  Serious: No
  Sender: FDA-Public Use
  Company Number: US-WYE-H11708709

PATIENT
  Sex: Female
  Weight: 58.11 kg

DRUGS (1)
  1. PRISTIQ [Suspect]
     Indication: PANIC ATTACK
     Dosage: 50 MG DAILY
     Route: 048
     Dates: start: 20090901

REACTIONS (1)
  - MYDRIASIS [None]
